FAERS Safety Report 13368901 (Version 1)
Quarter: 2017Q1

REPORT INFORMATION
  Report Type: Spontaneous
  Country: US (occurrence: US)
  Receive Date: 20170324
  Receipt Date: 20170324
  Transmission Date: 20170429
  Serious: Yes (Other)
  Sender: FDA-Public Use
  Company Number: US-BRISTOL-MYERS SQUIBB COMPANY-BMS-2017-023945

PATIENT
  Sex: Female

DRUGS (2)
  1. XARELTO [Interacting]
     Active Substance: RIVAROXABAN
     Indication: PRODUCT USED FOR UNKNOWN INDICATION
     Route: 065
  2. ELIQUIS [Suspect]
     Active Substance: APIXABAN
     Indication: CEREBROVASCULAR ACCIDENT PROPHYLAXIS
     Route: 048

REACTIONS (9)
  - Dementia [Unknown]
  - Incoherent [Unknown]
  - Contraindicated product administered [Unknown]
  - Increased tendency to bruise [Unknown]
  - Brain injury [Unknown]
  - Asthenia [Unknown]
  - Dizziness [Unknown]
  - Dysstasia [Unknown]
  - Labelled drug-drug interaction medication error [Unknown]
